FAERS Safety Report 5715825-X (Version None)
Quarter: 2008Q2

REPORT INFORMATION
  Report Type: 
  Country: None (occurrence: None)
  Receive Date: 20080424
  Receipt Date: 20080409
  Transmission Date: 20081010
  Serious: Yes (Hospitalization, Other)
  Sender: FDA-Public Use
  Company Number: DE-AMGEN-UK269897

PATIENT
  Age: 71 Year
  Sex: Female
  Weight: 60 kg

DRUGS (4)
  1. NEULASTA [Suspect]
     Indication: CHEMOTHERAPY
     Route: 058
     Dates: start: 20080206, end: 20080206
  2. GENTAMYCIN SULFATE [Suspect]
     Route: 065
     Dates: start: 20080127, end: 20080203
  3. FLUOROURACIL [Concomitant]
     Route: 065
  4. CEFUROXIME [Concomitant]
     Route: 065
     Dates: start: 20080129, end: 20080203

REACTIONS (2)
  - RENAL FAILURE ACUTE [None]
  - WHITE BLOOD CELL COUNT INCREASED [None]
